APPROVED DRUG PRODUCT: OXYTROL FOR WOMEN
Active Ingredient: OXYBUTYNIN
Strength: 3.9MG/24HR
Dosage Form/Route: FILM, EXTENDED RELEASE;TRANSDERMAL
Application: N202211 | Product #001
Applicant: ABBVIE
Approved: Jan 25, 2013 | RLD: Yes | RS: Yes | Type: OTC